FAERS Safety Report 9971540 (Version 1)
Quarter: 2014Q1

REPORT INFORMATION
  Report Type: Spontaneous
  Country: US (occurrence: None)
  Receive Date: 20140305
  Receipt Date: 20140305
  Transmission Date: 20141002
  Serious: Yes (Hospitalization)
  Sender: FDA-Public Use
  Company Number: None

PATIENT
  Age: 63 Year
  Sex: Female
  Weight: 63.5 kg

DRUGS (2)
  1. FOSAMAX [Suspect]
     Indication: BONE DENSITOMETRY
     Dosage: 1 PILL
     Route: 048
  2. FOSAMAX [Suspect]
     Indication: OSTEOPENIA
     Dosage: 1 PILL
     Route: 048

REACTIONS (2)
  - Atypical femur fracture [None]
  - Incorrect drug administration duration [None]
